FAERS Safety Report 6131105-5 (Version None)
Quarter: 2009Q1

REPORT INFORMATION
  Report Type: 
  Country: None (occurrence: None)
  Receive Date: 20090325
  Receipt Date: 20090316
  Transmission Date: 20090719
  Serious: Yes (Other)
  Sender: FDA-Public Use
  Company Number: PHHY2009CA10170

PATIENT
  Sex: Female
  Weight: 43.537 kg

DRUGS (1)
  1. ACLASTA [Suspect]
     Indication: OSTEOPOROSIS
     Dosage: UNK
     Dates: start: 20081010

REACTIONS (5)
  - ASTHENIA [None]
  - DIARRHOEA [None]
  - MALAISE [None]
  - TREMOR [None]
  - WEIGHT DECREASED [None]
